FAERS Safety Report 10627251 (Version 1)
Quarter: 2014Q4

REPORT INFORMATION
  Report Type: Spontaneous
  Country: DE (occurrence: DE)
  Receive Date: 20141204
  Receipt Date: 20141204
  Transmission Date: 20150529
  Serious: Yes (Congenital Anomaly, Other)
  Sender: FDA-Public Use
  Company Number: DE-GLAXOSMITHKLINE-DE2014GSK030339

PATIENT
  Sex: Male
  Weight: 1.27 kg

DRUGS (5)
  1. DOXYCYCLINE-RATIOPHARM [Suspect]
     Active Substance: DOXYCYCLINE
     Indication: SALPINGITIS
     Dosage: 100 MG, UNK
     Route: 064
     Dates: start: 20131010, end: 20131020
  2. METRONIDAZOLE. [Suspect]
     Active Substance: METRONIDAZOLE
     Indication: SALPINGITIS
     Dosage: UNK
     Route: 062
     Dates: start: 20131010, end: 20131020
  3. CEFUROXIME. [Suspect]
     Active Substance: CEFUROXIME
     Indication: SALPINGITIS
     Dosage: UNK
     Route: 064
     Dates: start: 20131010, end: 20131020
  4. METRONIDAZOLE. [Suspect]
     Active Substance: METRONIDAZOLE
     Indication: LAPAROSCOPY
  5. PRESINOL [Concomitant]
     Active Substance: METHYLDOPA
     Indication: GESTATIONAL HYPERTENSION

REACTIONS (3)
  - Foetal exposure during pregnancy [Unknown]
  - Chondrodystrophy [Unknown]
  - Foetal growth restriction [Unknown]

NARRATIVE: CASE EVENT DATE: 2014
